FAERS Safety Report 7382504-5 (Version None)
Quarter: 2011Q1

REPORT INFORMATION
  Report Type: 
  Country: None (occurrence: None)
  Receive Date: 20110329
  Receipt Date: 20110317
  Transmission Date: 20110831
  Serious: Yes (Other)
  Sender: FDA-Public Use
  Company Number: DE-BAYER-2011-023968

PATIENT
  Age: 41 Year
  Sex: Female

DRUGS (2)
  1. LEVOTHYROXINE SODIUM [Concomitant]
  2. QLAIRA FILMTABLETTEN [Suspect]
     Indication: PRODUCT USED FOR UNKNOWN INDICATION
     Dosage: UNK
     Route: 048

REACTIONS (3)
  - TACHYCARDIA [None]
  - CARDIAC DISCOMFORT [None]
  - BUNDLE BRANCH BLOCK LEFT [None]
